FAERS Safety Report 15221620 (Version 4)
Quarter: 2018Q4

REPORT INFORMATION
  Report Type: Report from Study
  Country: US (occurrence: US)
  Receive Date: 20180731
  Receipt Date: 20181002
  Transmission Date: 20190204
  Serious: Yes (Hospitalization, Other)
  Sender: FDA-Public Use
  Company Number: PHHY2018US061528

PATIENT
  Age: 39 Year
  Sex: Male

DRUGS (25)
  1. CLOZARIL [Suspect]
     Active Substance: CLOZAPINE
     Indication: PRODUCT USED FOR UNKNOWN INDICATION
     Dosage: 100-150 MG, UNK
     Route: 048
     Dates: start: 20040218
  2. CLOZARIL [Suspect]
     Active Substance: CLOZAPINE
     Dosage: 200 MG HS
     Route: 048
     Dates: start: 20040226, end: 20040229
  3. CLOZARIL [Suspect]
     Active Substance: CLOZAPINE
     Dosage: 25MG MORNING 75MG BEDTIME
     Route: 048
  4. ZYPREXA [Concomitant]
     Active Substance: OLANZAPINE
     Indication: PRODUCT USED FOR UNKNOWN INDICATION
     Dosage: UNK
     Route: 048
     Dates: start: 20040223
  5. DEPAKOTE [Concomitant]
     Active Substance: DIVALPROEX SODIUM
     Indication: PRODUCT USED FOR UNKNOWN INDICATION
     Dosage: UNK
     Route: 048
  6. KEFLEX [Concomitant]
     Active Substance: CEPHALEXIN
     Indication: PRODUCT USED FOR UNKNOWN INDICATION
     Dosage: UNK
     Route: 065
  7. HIBICLENS [Concomitant]
     Active Substance: CHLORHEXIDINE GLUCONATE
     Indication: PRODUCT USED FOR UNKNOWN INDICATION
     Dosage: UNK
     Route: 065
  8. HALOPERIDOL. [Suspect]
     Active Substance: HALOPERIDOL
     Dosage: 2 MG AT BEDTIME
     Route: 065
  9. CLOZARIL [Suspect]
     Active Substance: CLOZAPINE
     Dosage: 125 MG, UNK
     Route: 048
     Dates: start: 20040224, end: 20040226
  10. HALOPERIDOL. [Suspect]
     Active Substance: HALOPERIDOL
     Indication: PRODUCT USED FOR UNKNOWN INDICATION
     Dosage: 5 MG, BID
     Route: 065
  11. ZYPREXA [Concomitant]
     Active Substance: OLANZAPINE
     Dosage: UNK
     Route: 048
  12. CLOZARIL [Suspect]
     Active Substance: CLOZAPINE
     Dosage: 2 MG AT BEDTIME
     Route: 065
  13. CLOZARIL [Suspect]
     Active Substance: CLOZAPINE
     Dosage: 20 MG, UNK
     Route: 065
  14. CLOZARIL [Suspect]
     Active Substance: CLOZAPINE
     Dosage: UNK
     Route: 065
     Dates: start: 201808
  15. RISPERDAL [Concomitant]
     Active Substance: RISPERIDONE
     Route: 048
  16. CLOZARIL [Suspect]
     Active Substance: CLOZAPINE
     Dosage: TITRATED TO 100 QHS
     Route: 048
     Dates: start: 20040222, end: 20040224
  17. CLOZARIL [Suspect]
     Active Substance: CLOZAPINE
     Dosage: DECREASED TO 150 MG QHS
     Route: 048
     Dates: start: 20040229, end: 20040302
  18. CLOZARIL [Suspect]
     Active Substance: CLOZAPINE
     Dosage: 50 MG, UNK
     Route: 048
     Dates: start: 20040303, end: 20040303
  19. CLOZAPINE. [Suspect]
     Active Substance: CLOZAPINE
     Indication: PRODUCT USED FOR UNKNOWN INDICATION
     Dosage: UNK
     Route: 065
     Dates: start: 201808
  20. BACITRACIN. [Concomitant]
     Active Substance: BACITRACIN
     Indication: PRODUCT USED FOR UNKNOWN INDICATION
     Dosage: UNK
     Route: 005
  21. ABILIFY [Suspect]
     Active Substance: ARIPIPRAZOLE
     Indication: PRODUCT USED FOR UNKNOWN INDICATION
     Dosage: 20 MG, QD
     Route: 065
  22. RISPERDAL [Concomitant]
     Active Substance: RISPERIDONE
     Indication: PRODUCT USED FOR UNKNOWN INDICATION
     Route: 048
  23. CLOZARIL [Suspect]
     Active Substance: CLOZAPINE
     Dosage: 20 MG, QD
     Route: 065
  24. CLOZARIL [Suspect]
     Active Substance: CLOZAPINE
     Dosage: 5 MG, BID
     Route: 065
  25. FLUOXETINE [Suspect]
     Active Substance: FLUOXETINE HYDROCHLORIDE
     Indication: PRODUCT USED FOR UNKNOWN INDICATION
     Dosage: 20 MG, UNK
     Route: 065

REACTIONS (22)
  - Psychogenic movement disorder [Recovering/Resolving]
  - Obsessive-compulsive disorder [Unknown]
  - Schizophrenia [Unknown]
  - Abnormal behaviour [Unknown]
  - Scratch [Unknown]
  - Speech disorder [Unknown]
  - Skin ulcer [Unknown]
  - Hypertension [Unknown]
  - Hand deformity [Unknown]
  - Psychotic disorder [Unknown]
  - Anxiety [Unknown]
  - Psychiatric decompensation [Unknown]
  - Schizoaffective disorder [Unknown]
  - Blood pressure increased [Unknown]
  - White blood cell count abnormal [Unknown]
  - Hypersomnia [Unknown]
  - Echolalia [Unknown]
  - Neutropenia [Recovered/Resolved]
  - Weight increased [Unknown]
  - Psychomotor hyperactivity [Unknown]
  - Fear [Unknown]
  - Anger [Unknown]

NARRATIVE: CASE EVENT DATE: 200402
